FAERS Safety Report 8675863 (Version 2)
Quarter: 2012Q4

REPORT INFORMATION
  Report Type: Spontaneous
  Country: ES (occurrence: None)
  Receive Date: 20120705
  Receipt Date: 20120917
  Transmission Date: 20130627
  Serious: Yes (Other)
  Sender: FDA-Public Use
  Company Number: ES-1192853

PATIENT
  Age: 65 Year
  Sex: Female
  Weight: 55 kg

DRUGS (5)
  1. TOBRADEX [Suspect]
     Indication: POSTOPERATIVE CARE
     Route: 047
     Dates: start: 20120525, end: 20120528
  2. TOBRADEX [Suspect]
     Indication: POSTOPERATIVE CARE
     Dosage: (EVERY 6 HOURS)
     Route: 047
     Dates: end: 20120627
  3. INSULATARD [Concomitant]
  4. ACTRAPID [Concomitant]
  5. LANTUS [Concomitant]

REACTIONS (2)
  - Blood glucose increased [None]
  - Increased insulin requirement [None]
